FAERS Safety Report 20096943 (Version 1)
Quarter: 2021Q4

REPORT INFORMATION
  Report Type: Spontaneous
  Country: US (occurrence: US)
  Receive Date: 20211122
  Receipt Date: 20211122
  Transmission Date: 20220303
  Serious: Yes (Death, Other)
  Sender: FDA-Public Use
  Company Number: US-LUPIN PHARMACEUTICALS INC.-2021-22765

PATIENT
  Age: 43 Year
  Sex: Female

DRUGS (11)
  1. AZITHROMYCIN [Suspect]
     Active Substance: AZITHROMYCIN
     Indication: Pneumonia
     Dosage: 500 MILLIGRAM
     Route: 042
  2. CEFTRIAXONE [Suspect]
     Active Substance: CEFTRIAXONE
     Indication: Product used for unknown indication
     Dosage: 1 GRAM
     Route: 042
  3. ALBUTEROL SULFATE [Suspect]
     Active Substance: ALBUTEROL SULFATE
     Indication: Asthma
     Dosage: UNK, RESPIRATORY (INHALATION)
  4. SODIUM CHLORIDE [Suspect]
     Active Substance: SODIUM CHLORIDE
     Indication: Hypotension
     Dosage: 500 ML, BOLUS DOSE
     Route: 040
  5. SODIUM CHLORIDE [Suspect]
     Active Substance: SODIUM CHLORIDE
     Dosage: 125 MILLILITER/HOUR
     Route: 042
  6. SODIUM CHLORIDE [Suspect]
     Active Substance: SODIUM CHLORIDE
     Dosage: 500 ML, RECEIVED SECOND BOLUS DOSE
     Route: 040
  7. ONDANSETRON [Suspect]
     Active Substance: ONDANSETRON
     Indication: Product used for unknown indication
     Dosage: UNK
     Route: 065
  8. IPRATROPIUM [Suspect]
     Active Substance: IPRATROPIUM
     Indication: Asthma
     Dosage: UNK
     Route: 065
  9. FLUTICASONE [Suspect]
     Active Substance: FLUTICASONE
     Indication: Asthma
     Dosage: UNKNOWN (INHALER), RESPIRATORY (INHALATION)
     Route: 055
  10. SALMETEROL [Suspect]
     Active Substance: SALMETEROL
     Indication: Asthma
     Dosage: UNKNOWN, INHALER, RESPIRATORY (INHALATION)
     Route: 055
  11. DOPAMINE [Suspect]
     Active Substance: DOPAMINE HYDROCHLORIDE
     Indication: Product used for unknown indication
     Dosage: UNK, INFUSION
     Route: 065

REACTIONS (23)
  - Premature separation of placenta [Fatal]
  - Exposure during pregnancy [Unknown]
  - Respiratory distress [Unknown]
  - Cor pulmonale acute [Unknown]
  - Congestive hepatopathy [Unknown]
  - Pulmonary haemorrhage [Unknown]
  - Myocardial haemorrhage [Unknown]
  - Aortic aneurysm [Unknown]
  - Foetal death [Unknown]
  - Small intestinal haemorrhage [Unknown]
  - Gastric haemorrhage [Unknown]
  - Urinary bladder haemorrhage [Unknown]
  - Hepatic haemorrhage [Unknown]
  - Anaphylactoid syndrome of pregnancy [Unknown]
  - Ovarian haemorrhage [Unknown]
  - Renal haemorrhage [Unknown]
  - Haemorrhage [Unknown]
  - Dizziness [Unknown]
  - Left atrial dilatation [Unknown]
  - Mitral valve prolapse [Unknown]
  - Right ventricular dilatation [Unknown]
  - Hyperhidrosis [Unknown]
  - Hypotension [Unknown]
